FAERS Safety Report 9657138 (Version 1)
Quarter: 2013Q4

REPORT INFORMATION
  Report Type: Spontaneous
  Country: TR (occurrence: TR)
  Receive Date: 20131030
  Receipt Date: 20131030
  Transmission Date: 20140711
  Serious: Yes (Other)
  Sender: FDA-Public Use
  Company Number: TR-ALLERGAN-1316681US

PATIENT
  Age: 84 Year
  Sex: Male

DRUGS (1)
  1. OZURDEX [Suspect]
     Indication: PRODUCT USED FOR UNKNOWN INDICATION
     Dosage: 0.7 MG, SINGLE
     Route: 031

REACTIONS (1)
  - Non-infectious endophthalmitis [Unknown]
